APPROVED DRUG PRODUCT: ARAMINE
Active Ingredient: METARAMINOL BITARTRATE
Strength: EQ 10MG BASE/ML **Federal Register determination that product was not discontinued or withdrawn for safety or effectiveness reasons**
Dosage Form/Route: INJECTABLE;INJECTION
Application: N009509 | Product #002
Applicant: MERCK AND CO INC
Approved: Dec 22, 1987 | RLD: Yes | RS: No | Type: DISCN